FAERS Safety Report 17471697 (Version 15)
Quarter: 2024Q4

REPORT INFORMATION
  Report Type: Report from Study
  Country: IL (occurrence: IL)
  Receive Date: 20200228
  Receipt Date: 20241220
  Transmission Date: 20250114
  Serious: Yes (Death, Hospitalization, Other)
  Sender: ABBVIE
  Company Number: IL-ABBVIE-19K-082-3001148-00

PATIENT
  Age: 83 Year
  Sex: Female
  Weight: 50 kg

DRUGS (17)
  1. VENCLEXTA [Suspect]
     Active Substance: VENETOCLAX
     Indication: Chronic lymphocytic leukaemia
     Dosage: 300 MILLIGRAM
     Route: 048
     Dates: start: 20190925, end: 20191006
  2. VENCLEXTA [Suspect]
     Active Substance: VENETOCLAX
     Indication: Chronic lymphocytic leukaemia
     Route: 048
     Dates: start: 20190804, end: 20190810
  3. VENCLEXTA [Suspect]
     Active Substance: VENETOCLAX
     Indication: Chronic lymphocytic leukaemia
     Route: 048
     Dates: start: 20190811, end: 20190817
  4. VENCLEXTA [Suspect]
     Active Substance: VENETOCLAX
     Indication: Chronic lymphocytic leukaemia
     Route: 048
     Dates: start: 20190818, end: 20190824
  5. VENCLEXTA [Suspect]
     Active Substance: VENETOCLAX
     Indication: Chronic lymphocytic leukaemia
     Dosage: DURATION TEXT: MODIFICATION TO THE DAILY DOSE
     Route: 048
     Dates: start: 20190825, end: 20190925
  6. VENCLEXTA [Suspect]
     Active Substance: VENETOCLAX
     Indication: Chronic lymphocytic leukaemia
     Route: 048
     Dates: start: 20190925, end: 20191006
  7. VENCLEXTA [Suspect]
     Active Substance: VENETOCLAX
     Indication: Chronic lymphocytic leukaemia
     Route: 048
     Dates: start: 20191009, end: 20191017
  8. VENCLEXTA [Suspect]
     Active Substance: VENETOCLAX
     Indication: Chronic lymphocytic leukaemia
     Route: 048
     Dates: start: 20191018, end: 20200122
  9. VENCLEXTA [Suspect]
     Active Substance: VENETOCLAX
     Indication: Chronic lymphocytic leukaemia
     Dosage: DURATION TEXT: MODIFICATION TO THE DAILY DOSE
     Route: 048
     Dates: start: 20200123, end: 20200130
  10. VENCLEXTA [Suspect]
     Active Substance: VENETOCLAX
     Indication: Chronic lymphocytic leukaemia
     Dosage: STOP DATE TEXT: ONGOING/DURATION TEXT: RAMP-UP
     Route: 048
     Dates: start: 20200131, end: 20200714
  11. VENCLEXTA [Suspect]
     Active Substance: VENETOCLAX
     Indication: Chronic lymphocytic leukaemia
     Dosage: DURATION TEXT: MODIFICATION TO THE DAILY DOSE
     Route: 048
     Dates: start: 20191006, end: 20191008
  12. LORATADINE [Concomitant]
     Active Substance: LORATADINE
     Indication: Pruritus
     Dates: start: 20190812, end: 20190821
  13. MABTHERA [Suspect]
     Active Substance: RITUXIMAB
     Indication: Monoclonal antibody immunoconjugate therapy
     Dosage: CYCLE NUMBER 1
     Route: 065
     Dates: start: 20200115, end: 20200115
  14. MABTHERA [Suspect]
     Active Substance: RITUXIMAB
     Indication: Monoclonal antibody immunoconjugate therapy
     Route: 065
     Dates: start: 20200223, end: 20200223
  15. ALLOPURINOL [Suspect]
     Active Substance: ALLOPURINOL
     Indication: Prophylaxis
     Route: 065
     Dates: start: 20190724, end: 20190925
  16. FOLIC ACID [Concomitant]
     Active Substance: FOLIC ACID
     Indication: Chronic lymphocytic leukaemia
     Route: 065
  17. FUROSEMIDE [Concomitant]
     Active Substance: FUROSEMIDE
     Indication: Hyperuricaemia
     Route: 065
     Dates: start: 20180227

REACTIONS (16)
  - Inflammatory myofibroblastic tumour [Fatal]
  - Decreased appetite [Fatal]
  - Asthenia [Not Recovered/Not Resolved]
  - Dehydration [Not Recovered/Not Resolved]
  - Hypoalbuminaemia [Not Recovered/Not Resolved]
  - Abdominal pain [Recovered/Resolved]
  - Oral candidiasis [Recovered/Resolved]
  - Sepsis [Recovered/Resolved]
  - Vomiting [Recovered/Resolved]
  - Pruritus [Recovered/Resolved]
  - Asthenia [Recovered/Resolved]
  - Rash [Recovered/Resolved]
  - Rash [Recovered/Resolved]
  - Platelet count decreased [Recovered/Resolved]
  - Neutropenia [Recovered/Resolved]
  - Urinary tract infection [Recovered/Resolved]

NARRATIVE: CASE EVENT DATE: 20190808
